FAERS Safety Report 16674488 (Version 2)
Quarter: 2019Q3

REPORT INFORMATION
  Report Type: Spontaneous
  Country: US (occurrence: US)
  Receive Date: 20190806
  Receipt Date: 20190910
  Transmission Date: 20191004
  Serious: Yes (Hospitalization)
  Sender: FDA-Public Use
  Company Number: US-ASTRAZENECA-2019SF10174

PATIENT
  Age: 75 Year
  Sex: Female
  Weight: 52.2 kg

DRUGS (1)
  1. TUDORZA PRESSAIR [Suspect]
     Active Substance: ACLIDINIUM BROMIDE
     Indication: CHRONIC OBSTRUCTIVE PULMONARY DISEASE
     Route: 055

REACTIONS (12)
  - Chronic obstructive pulmonary disease [Not Recovered/Not Resolved]
  - Weight decreased [Not Recovered/Not Resolved]
  - Oedema peripheral [Unknown]
  - Asthenia [Not Recovered/Not Resolved]
  - Device malfunction [Unknown]
  - Incorrect dose administered [Not Recovered/Not Resolved]
  - Ejection fraction decreased [Not Recovered/Not Resolved]
  - Oxygen consumption decreased [Not Recovered/Not Resolved]
  - Cardiac failure congestive [Unknown]
  - Atrial fibrillation [Unknown]
  - Confusional state [Not Recovered/Not Resolved]
  - Body height decreased [Unknown]

NARRATIVE: CASE EVENT DATE: 2015
